FAERS Safety Report 7475133-6 (Version None)
Quarter: 2011Q2

REPORT INFORMATION
  Report Type: 
  Country: None (occurrence: None)
  Receive Date: 20110512
  Receipt Date: 20110427
  Transmission Date: 20111010
  Serious: Yes (Hospitalization, Other)
  Sender: FDA-Public Use
  Company Number: US-ELI_LILLY_AND_COMPANY-US201008005104

PATIENT
  Sex: Male

DRUGS (7)
  1. FORTEO [Suspect]
     Indication: OSTEOPOROSIS
     Dosage: 20 UG, DAILY (1/D)
     Dates: start: 20100622
  2. TRAZODONE HCL [Concomitant]
     Dosage: UNK, UNKNOWN
     Route: 065
  3. FORTEO [Suspect]
     Dosage: 20 UG, QD
     Route: 065
  4. SOMA [Concomitant]
     Dosage: UNK, UNKNOWN
     Route: 065
  5. DOXEPIN [Concomitant]
     Dosage: UNK, UNKNOWN
     Route: 065
  6. METHADONE HCL [Concomitant]
     Dosage: UNK, UNKNOWN
     Route: 065
  7. HYDROCODONE BITARTRATE [Concomitant]
     Dosage: UNK, UNKNOWN
     Route: 065

REACTIONS (6)
  - PAIN IN EXTREMITY [None]
  - HEPATITIS [None]
  - GALLSTONE ILEUS [None]
  - FEELING HOT [None]
  - PIGMENTATION DISORDER [None]
  - PANCREATITIS [None]
